FAERS Safety Report 18208018 (Version 1)
Quarter: 2020Q3

REPORT INFORMATION
  Report Type: Spontaneous
  Country: US (occurrence: US)
  Receive Date: 20200828
  Receipt Date: 20200828
  Transmission Date: 20201103
  Serious: No
  Sender: FDA-Public Use
  Company Number: None

PATIENT
  Age: 51 Year
  Sex: Female
  Weight: 77.4 kg

DRUGS (1)
  1. OMEGA?3?ACID ETHYL ESTERS CAPSULES, USP [Suspect]
     Active Substance: OMEGA-3-ACID ETHYL ESTERS
     Indication: BLOOD CHOLESTEROL INCREASED
     Dosage: ?          QUANTITY:4 CAPSULE(S);?
     Route: 048
     Dates: start: 20190901, end: 20200827

REACTIONS (9)
  - Pruritus [None]
  - Gastric pH decreased [None]
  - Hepatic cyst [None]
  - Blood disorder [None]
  - Urticaria [None]
  - Headache [None]
  - Epistaxis [None]
  - Back pain [None]
  - Dizziness [None]
